FAERS Safety Report 6937042-8 (Version None)
Quarter: 2010Q3

REPORT INFORMATION
  Report Type: 
  Country: None (occurrence: None)
  Receive Date: 20100823
  Receipt Date: 20100810
  Transmission Date: 20110219
  Serious: Yes (Hospitalization, Other)
  Sender: FDA-Public Use
  Company Number: PHHY2010GB15589

PATIENT
  Age: 31 Year
  Sex: Female

DRUGS (1)
  1. NEORAL [Suspect]
     Indication: PSORIASIS
     Dosage: 100 MG, BID

REACTIONS (5)
  - ACCIDENT [None]
  - BONE GRAFT [None]
  - BONE GRAFT REMOVAL [None]
  - TRANSPLANT REJECTION [None]
  - WOUND [None]
